FAERS Safety Report 11857557 (Version 1)
Quarter: 2015Q4

REPORT INFORMATION
  Report Type: Spontaneous
  Country: US (occurrence: US)
  Receive Date: 20151221
  Receipt Date: 20151221
  Transmission Date: 20160305
  Serious: No
  Sender: FDA-Public Use
  Company Number: US-MISSION PHARMACAL COMPANY-1045741

PATIENT
  Age: 14 Year
  Sex: Female

DRUGS (1)
  1. THIOLA [Suspect]
     Active Substance: TIOPRONIN
     Indication: CYSTINURIA
     Route: 065
     Dates: start: 20150824

REACTIONS (8)
  - Dizziness [Unknown]
  - Asthenia [Unknown]
  - Amnesia [Unknown]
  - Fatigue [Unknown]
  - Renal pain [Unknown]
  - Disturbance in attention [Unknown]
  - Nausea [Unknown]
  - Renal stone removal [Unknown]
